FAERS Safety Report 18498428 (Version 1)
Quarter: 2020Q4

REPORT INFORMATION
  Report Type: Report from Study
  Country: None (occurrence: US)
  Receive Date: 20201113
  Receipt Date: 20201113
  Transmission Date: 20210114
  Serious: Yes (Hospitalization, Other)
  Sender: FDA-Public Use
  Company Number: US-ABBVIE-19P-163-2622419-00

PATIENT
  Age: 34 Year
  Sex: Female
  Weight: 81.72 kg

DRUGS (9)
  1. EPINEPHRINE. [Concomitant]
     Active Substance: EPINEPHRINE
     Indication: ANAPHYLACTIC REACTION
  2. LUPRON DEPOT [Suspect]
     Active Substance: LEUPROLIDE ACETATE
     Indication: PRODUCT USED FOR UNKNOWN INDICATION
     Route: 065
  3. ORILISSA [Suspect]
     Active Substance: ELAGOLIX SODIUM
     Indication: ENDOMETRIOSIS
     Route: 048
     Dates: start: 201811, end: 20190123
  4. ALLEGRA [Concomitant]
     Active Substance: FEXOFENADINE HYDROCHLORIDE
     Indication: HYPERSENSITIVITY
  5. FLEXERIL [Concomitant]
     Active Substance: CYCLOBENZAPRINE HYDROCHLORIDE
     Indication: MUSCLE RELAXANT THERAPY
  6. ORILISSA [Suspect]
     Active Substance: ELAGOLIX SODIUM
     Indication: OVARIAN CYST
  7. ESTROGEN [Suspect]
     Active Substance: ESTROGENS
     Indication: OVARIAN CYST
  8. ESTROGEN [Suspect]
     Active Substance: ESTROGENS
     Indication: ENDOMETRIOSIS
     Route: 065
     Dates: start: 20190118
  9. CYTOMEL [Concomitant]
     Active Substance: LIOTHYRONINE SODIUM
     Indication: HYPOTHYROIDISM

REACTIONS (31)
  - Peripheral swelling [Recovering/Resolving]
  - Arthralgia [Not Recovered/Not Resolved]
  - Dizziness [Recovered/Resolved]
  - Decreased appetite [Recovered/Resolved]
  - Dysgeusia [Recovered/Resolved]
  - Thyroid disorder [Recovering/Resolving]
  - Feeling hot [Not Recovered/Not Resolved]
  - Vision blurred [Recovered/Resolved]
  - Alopecia [Recovered/Resolved]
  - Hot flush [Not Recovered/Not Resolved]
  - Mood swings [Recovered/Resolved]
  - Menstrual disorder [Recovered/Resolved]
  - Weight increased [Recovered/Resolved]
  - Swelling face [Not Recovered/Not Resolved]
  - Libido decreased [Recovering/Resolving]
  - Heart rate increased [Recovering/Resolving]
  - Sinusitis [Recovered/Resolved]
  - Joint swelling [Recovering/Resolving]
  - Loss of personal independence in daily activities [Unknown]
  - Hypothyroidism [Not Recovered/Not Resolved]
  - Vascular injury [Recovered/Resolved]
  - Lip swelling [Recovering/Resolving]
  - Body temperature abnormal [Recovering/Resolving]
  - Weight increased [Not Recovered/Not Resolved]
  - Blood pressure increased [Recovered/Resolved]
  - Hypersensitivity [Not Recovered/Not Resolved]
  - Dyspnoea [Recovering/Resolving]
  - Tremor [Not Recovered/Not Resolved]
  - Pain [Not Recovered/Not Resolved]
  - Eye haemorrhage [Recovered/Resolved]
  - Depression [Recovering/Resolving]

NARRATIVE: CASE EVENT DATE: 201811
